FAERS Safety Report 23654105 (Version 1)
Quarter: 2024Q1

REPORT INFORMATION
  Report Type: Spontaneous
  Country: US (occurrence: None)
  Receive Date: 20240319
  Receipt Date: 20240319
  Transmission Date: 20240410
  Serious: Yes (Other)
  Sender: FDA-Public Use
  Company Number: None

PATIENT
  Sex: Female

DRUGS (2)
  1. FLAGYL [Suspect]
     Active Substance: METRONIDAZOLE\METRONIDAZOLE HYDROCHLORIDE
     Indication: Diverticulitis
     Dates: start: 20240228, end: 20240303
  2. CEFTIN [Suspect]
     Active Substance: CEFUROXIME AXETIL

REACTIONS (3)
  - Pain in extremity [None]
  - Paraesthesia [None]
  - Hepatic function abnormal [None]

NARRATIVE: CASE EVENT DATE: 20240302
